FAERS Safety Report 22376021 (Version 1)
Quarter: 2023Q2

REPORT INFORMATION
  Report Type: Spontaneous
  Country: US (occurrence: US)
  Receive Date: 20230527
  Receipt Date: 20230527
  Transmission Date: 20230722
  Serious: No
  Sender: FDA-Public Use
  Company Number: US-Accord-280938

PATIENT
  Sex: Female

DRUGS (1)
  1. METHOTREXATE [Suspect]
     Active Substance: METHOTREXATE
     Indication: Psoriatic arthropathy
     Dosage: 50 MG/2 ML - 2 ML SINGLE DOSE VIAL, 1ML/ONCE A WEEK
     Dates: start: 20221001

REACTIONS (5)
  - Needle issue [Unknown]
  - Accidental exposure to product [Unknown]
  - Skin burning sensation [Recovering/Resolving]
  - Skin lesion [Recovering/Resolving]
  - Purulent discharge [Recovering/Resolving]
